FAERS Safety Report 10047080 (Version 3)
Quarter: 2014Q2

REPORT INFORMATION
  Report Type: Report from Study
  Country: CA (occurrence: CA)
  Receive Date: 20140331
  Receipt Date: 20140430
  Transmission Date: 20141212
  Serious: Yes (Death, Other)
  Sender: FDA-Public Use
  Company Number: CA-JNJFOC-20140311993

PATIENT
  Age: 75 Year
  Sex: Male

DRUGS (1)
  1. ZYTIGA [Suspect]
     Indication: PROSTATE CANCER METASTATIC
     Route: 048

REACTIONS (6)
  - Aspartate aminotransferase increased [Unknown]
  - Bilirubin conjugated increased [Unknown]
  - Blood bilirubin increased [Unknown]
  - Death [Fatal]
  - Alanine aminotransferase increased [Unknown]
  - Blood sodium decreased [Unknown]
